FAERS Safety Report 7207108-6 (Version None)
Quarter: 2011Q1

REPORT INFORMATION
  Report Type: 
  Country: None (occurrence: None)
  Receive Date: 20110103
  Receipt Date: 20101222
  Transmission Date: 20110831
  Serious: Yes (Hospitalization, Other)
  Sender: FDA-Public Use
  Company Number: DE-ELI_LILLY_AND_COMPANY-DE201012001958

PATIENT
  Sex: Male
  Weight: 60.6 kg

DRUGS (6)
  1. NECITUMUMAB (11F8) (LY3012211) [Suspect]
     Indication: NON-SMALL CELL LUNG CANCER
     Dosage: 800 MG, OTHER
     Route: 042
     Dates: start: 20101018
  2. CISPLATIN [Suspect]
     Indication: NON-SMALL CELL LUNG CANCER
     Dosage: 125 MG, OTHER
     Route: 042
     Dates: start: 20101018
  3. GEMCITABINE HCL [Suspect]
     Indication: NON-SMALL CELL LUNG CANCER
     Dosage: 2085 MG, OTHER
     Route: 042
     Dates: start: 20101018
  4. DELIX [Concomitant]
     Indication: HYPERTENSION
     Dates: start: 20101014
  5. RAMIPRIL [Concomitant]
     Indication: HYPERTENSION
     Dates: start: 20101004
  6. FORMOTEROL FUMARATE [Concomitant]
     Indication: CHRONIC OBSTRUCTIVE PULMONARY DISEASE
     Dates: start: 20100901

REACTIONS (3)
  - DIARRHOEA [None]
  - SYNCOPE [None]
  - DEHYDRATION [None]
